FAERS Safety Report 10872903 (Version 1)
Quarter: 2015Q1

REPORT INFORMATION
  Report Type: Spontaneous
  Country: US (occurrence: US)
  Receive Date: 20150227
  Receipt Date: 20150227
  Transmission Date: 20150721
  Serious: No
  Sender: FDA-Public Use
  Company Number: US-009507513-1502USA002825

PATIENT
  Age: 56 Year
  Sex: Female

DRUGS (1)
  1. SUCCINYLCHLORIDE INJECTION [Suspect]
     Active Substance: SUCCINYLCHOLINE
     Indication: ANAESTHESIA
     Dosage: 120 MG, UNK

REACTIONS (1)
  - Post procedural complication [Unknown]
